FAERS Safety Report 17102096 (Version 5)
Quarter: 2020Q1

REPORT INFORMATION
  Report Type: Report from Study
  Country: US (occurrence: US)
  Receive Date: 20191202
  Receipt Date: 20200203
  Transmission Date: 20200409
  Serious: Yes (Other)
  Sender: FDA-Public Use
  Company Number: US-GILEAD-2019-0440179

PATIENT
  Age: 48 Year
  Sex: Female

DRUGS (5)
  1. MUCINEX [Concomitant]
     Active Substance: GUAIFENESIN
  2. REMODULIN [Concomitant]
     Active Substance: TREPROSTINIL
  3. TADALAFIL. [Concomitant]
     Active Substance: TADALAFIL
  4. ADEMPAS [Concomitant]
     Active Substance: RIOCIGUAT
  5. AMBRISENTAN [Suspect]
     Active Substance: AMBRISENTAN
     Indication: PRODUCT USED FOR UNKNOWN INDICATION
     Dosage: 10 MG, QD
     Route: 048
     Dates: start: 20150526

REACTIONS (19)
  - Pain [Recovering/Resolving]
  - Pneumonia [Not Recovered/Not Resolved]
  - Diarrhoea [Not Recovered/Not Resolved]
  - Irritable bowel syndrome [Not Recovered/Not Resolved]
  - Migraine [Not Recovered/Not Resolved]
  - Somnolence [Not Recovered/Not Resolved]
  - Transplant evaluation [Not Recovered/Not Resolved]
  - Dyspnoea exertional [Not Recovered/Not Resolved]
  - Dyspnoea [Recovering/Resolving]
  - Gastrooesophageal reflux disease [Not Recovered/Not Resolved]
  - Heart rate abnormal [Not Recovered/Not Resolved]
  - Oxygen saturation decreased [Recovering/Resolving]
  - Productive cough [Recovering/Resolving]
  - Pyrexia [Recovering/Resolving]
  - Chest discomfort [Not Recovered/Not Resolved]
  - Upper respiratory tract infection [Recovering/Resolving]
  - Chills [Recovering/Resolving]
  - Nasal congestion [Recovering/Resolving]
  - Constipation [Not Recovered/Not Resolved]
